FAERS Safety Report 8588063-3 (Version None)
Quarter: 2012Q3

REPORT INFORMATION
  Report Type: 
  Country: None (occurrence: None)
  Receive Date: 20120813
  Receipt Date: 20120810
  Transmission Date: 20120928
  Serious: No
  Sender: FDA-Public Use
  Company Number: US-PFIZER INC-2012195994

PATIENT
  Age: 12 Year
  Sex: Male
  Weight: 45.351 kg

DRUGS (3)
  1. GEODON [Suspect]
     Indication: PSYCHOTIC DISORDER
     Dosage: 40 MG, DAILY
     Dates: start: 20120808
  2. INTUNIV [Concomitant]
     Indication: ATTENTION DEFICIT/HYPERACTIVITY DISORDER
     Dosage: 2 MG,DAILY
     Dates: start: 20120609
  3. GEODON [Suspect]
     Indication: BIPOLAR DISORDER
     Dosage: 20 MG,DAILY
     Dates: start: 20120803, end: 20120807

REACTIONS (3)
  - FATIGUE [None]
  - OFF LABEL USE [None]
  - INSOMNIA [None]
